FAERS Safety Report 5678675-9 (Version None)
Quarter: 2008Q1

REPORT INFORMATION
  Report Type: 
  Country: None (occurrence: None)
  Receive Date: 20080321
  Receipt Date: 20080314
  Transmission Date: 20080703
  Serious: Yes (Death)
  Sender: FDA-Public Use
  Company Number: TPA2008A00317

PATIENT
  Age: 33 Year
  Sex: Male

DRUGS (9)
  1. ROZEREM [Suspect]
     Indication: INSOMNIA
     Dosage: PER ORAL
     Route: 048
     Dates: end: 20080101
  2. OPANA ER       (OXYMORPHONE HYDROCHLORIDE) [Suspect]
     Indication: PAIN
     Dosage: 20 MG, 2 IN 1 D, PER ORAL
     Route: 048
     Dates: start: 20071101, end: 20080101
  3. CLONAZEPAM        (CLONAZEPAM) (TABLETS) [Suspect]
     Indication: ANXIETY
     Dosage: 1 MG, 3 IN 1 D, PER ORAL
     Route: 048
     Dates: end: 20080101
  4. CYCLOBENZAPRINE     (CYCLOBENZAPRINE) (TABLETS) [Suspect]
     Indication: DRUG USE FOR UNKNOWN INDICATION
     Dosage: 10 MG, 3 IN 1 D, PER ORAL
     Route: 048
     Dates: end: 20080101
  5. AMITRIPTYLINE     (AMITRIPTYLINE) (TABLETS) [Suspect]
     Indication: DEPRESSION
     Dosage: 50 MG, 2 TABLETS QHS, PER ORAL
     Route: 048
     Dates: end: 20080101
  6. WELLBUTRIN XL [Suspect]
     Indication: DEPRESSION
     Dosage: 300 MG, 1 IN 1 D, PER ORAL
     Route: 048
     Dates: end: 20080101
  7. OXYCODONE HCL [Suspect]
     Indication: PAIN
     Dosage: 1-2 5 MG TABLETS, BID PRN, PER ORAL
     Route: 048
     Dates: end: 20080101
  8. MICARDIS [Suspect]
     Indication: HYPERTENSION
     Dosage: 80 MG, 1 IN 1 D, PER ORAL
     Route: 048
     Dates: end: 20080101
  9. BACLOFEN [Suspect]
     Dosage: 20 MG, 2 TABLETS, BID, PER ORAL
     Route: 048
     Dates: end: 20080101

REACTIONS (3)
  - ACCIDENTAL DEATH [None]
  - DRUG TOXICITY [None]
  - LOSS OF CONSCIOUSNESS [None]
